FAERS Safety Report 4289886-1 (Version None)
Quarter: 2004Q1

REPORT INFORMATION
  Report Type: 
  Country: None (occurrence: None)
  Receive Date: 20040209
  Receipt Date: 20040128
  Transmission Date: 20041129
  Serious: Yes (Death, Hospitalization)
  Sender: FDA-Public Use
  Company Number: 200410359FR

PATIENT
  Age: 61 Year
  Sex: Female

DRUGS (2)
  1. TAXOTERE [Suspect]
     Indication: BREAST CANCER
     Route: 042
     Dates: start: 20031022, end: 20031022
  2. EPIRUBICIN [Suspect]
     Indication: BREAST CANCER
     Route: 042
     Dates: start: 20031022, end: 20031022

REACTIONS (6)
  - ASCITES [None]
  - ENTEROCOLITIS [None]
  - GASTROINTESTINAL NECROSIS [None]
  - INTESTINAL INFARCTION [None]
  - NEUTROPENIA [None]
  - SHOCK [None]
